FAERS Safety Report 19809846 (Version 5)
Quarter: 2023Q2

REPORT INFORMATION
  Report Type: Other
  Country: US (occurrence: None)
  Receive Date: 20210908
  Receipt Date: 20230515
  Transmission Date: 20230721
  Serious: Yes (Other)
  Sender: FDA-Public Use
  Company Number: US-ROCHE-2759319

PATIENT
  Age: 77 Year
  Sex: Female
  Weight: 70.37 kg

DRUGS (4)
  1. ALECENSA [Suspect]
     Active Substance: ALECTINIB HYDROCHLORIDE
     Indication: Follicular thyroid cancer
     Dosage: STARTED AT 600 MG TWICE PER DAY UNTIL 29/OCT/2020
     Route: 048
     Dates: start: 20200407, end: 20230425
  2. ALECENSA [Suspect]
     Active Substance: ALECTINIB HYDROCHLORIDE
     Indication: Brain operation
     Dosage: 300 MG PER DAY?TAKE 4 CAPSULES
     Route: 048
  3. ALECENSA [Suspect]
     Active Substance: ALECTINIB HYDROCHLORIDE
     Indication: Thyroid cancer
  4. LEVOTHYROXINE [Concomitant]
     Active Substance: LEVOTHYROXINE
     Indication: Thyroidectomy
     Route: 048
     Dates: start: 200306

REACTIONS (10)
  - Fatigue [Unknown]
  - Blood creatinine increased [Recovered/Resolved]
  - Aspartate aminotransferase increased [Not Recovered/Not Resolved]
  - Haemoglobin decreased [Not Recovered/Not Resolved]
  - Hypotension [Unknown]
  - Off label use [Unknown]
  - Breast cancer [Recovered/Resolved]
  - Invasive lobular breast carcinoma [Recovered/Resolved]
  - Thyroid cancer recurrent [Not Recovered/Not Resolved]
  - Glomerular filtration rate decreased [Not Recovered/Not Resolved]

NARRATIVE: CASE EVENT DATE: 20200407
